FAERS Safety Report 4537451-0 (Version None)
Quarter: 2004Q4

REPORT INFORMATION
  Report Type: 
  Country: None (occurrence: None)
  Receive Date: 20041223
  Receipt Date: 20031121
  Transmission Date: 20050328
  Serious: Yes (Hospitalization, Disabling)
  Sender: FDA-Public Use
  Company Number: US-MERCK-0311USA02557

PATIENT
  Age: 49 Year
  Sex: Female
  Weight: 70 kg

DRUGS (9)
  1. VIOXX [Suspect]
     Indication: DYSMENORRHOEA
     Route: 048
     Dates: start: 20000314, end: 20001125
  2. VIOXX [Suspect]
     Route: 065
  3. VIOXX [Suspect]
     Route: 048
     Dates: start: 20000314, end: 20001125
  4. VIOXX [Suspect]
     Route: 065
  5. TENORMIN [Concomitant]
     Indication: MITRAL VALVE PROLAPSE
     Route: 065
     Dates: start: 19990101
  6. ZOLOFT [Concomitant]
     Indication: NERVOUSNESS
     Route: 065
     Dates: start: 20001110
  7. ESTROGENS (UNSPECIFIED) [Concomitant]
     Indication: HORMONE REPLACEMENT THERAPY
     Route: 065
     Dates: start: 20001110, end: 20001125
  8. ZANAFLEX [Concomitant]
     Route: 065
  9. RESTORIL [Concomitant]
     Route: 065

REACTIONS (26)
  - ANXIETY [None]
  - BACK PAIN [None]
  - CARPAL TUNNEL SYNDROME [None]
  - CEREBRAL ISCHAEMIA [None]
  - CEREBROVASCULAR ACCIDENT [None]
  - CERVICOBRACHIAL SYNDROME [None]
  - CHEST PAIN [None]
  - DEPRESSION [None]
  - DIZZINESS [None]
  - EMOTIONAL DISTRESS [None]
  - FATIGUE [None]
  - HEADACHE [None]
  - HYPERCHOLESTEROLAEMIA [None]
  - HYPERLIPIDAEMIA [None]
  - HYPERTENSION [None]
  - INJURY [None]
  - INSOMNIA [None]
  - LIBIDO DECREASED [None]
  - LUMBAR RADICULOPATHY [None]
  - MASS [None]
  - MENOPAUSAL SYMPTOMS [None]
  - OSTEOARTHRITIS [None]
  - RHEUMATOID ARTHRITIS [None]
  - SLEEP DISORDER [None]
  - TACHYCARDIA [None]
  - VULVOVAGINAL DRYNESS [None]
